FAERS Safety Report 6781847-3 (Version None)
Quarter: 2010Q2

REPORT INFORMATION
  Report Type: 
  Country: None (occurrence: None)
  Receive Date: 20100621
  Receipt Date: 20100609
  Transmission Date: 20101027
  Serious: Yes (Hospitalization, Other)
  Sender: FDA-Public Use
  Company Number: PHHO2010AU08781

PATIENT
  Sex: Male
  Weight: 80 kg

DRUGS (1)
  1. DIOVAN T30230+ [Suspect]
     Indication: HYPERTENSION
     Dosage: 160 MG
     Route: 048
     Dates: start: 20100513

REACTIONS (3)
  - ANGINA UNSTABLE [None]
  - CHEST PAIN [None]
  - DISEASE PROGRESSION [None]
